FAERS Safety Report 7282864-X (Version None)
Quarter: 2011Q1

REPORT INFORMATION
  Report Type: 
  Country: None (occurrence: None)
  Receive Date: 20110209
  Receipt Date: 20110208
  Transmission Date: 20110831
  Serious: Yes (Other)
  Sender: FDA-Public Use
  Company Number: JP-PFIZER INC-2011027504

PATIENT
  Sex: Female

DRUGS (1)
  1. LYRICA [Suspect]
     Indication: FIBROMYALGIA
     Dosage: UNK
     Route: 048

REACTIONS (5)
  - DRUG INEFFECTIVE [None]
  - DRY EYE [None]
  - CORNEAL DISORDER [None]
  - VISUAL ACUITY REDUCED [None]
  - FALL [None]
